FAERS Safety Report 16138752 (Version 1)
Quarter: 2019Q2

REPORT INFORMATION
  Report Type: Spontaneous
  Country: US (occurrence: US)
  Receive Date: 20190401
  Receipt Date: 20190401
  Transmission Date: 20190711
  Serious: No
  Sender: FDA-Public Use
  Company Number: US-TEVA-2019-US-1032893

PATIENT
  Age: 69 Year
  Sex: Female
  Weight: 62.58 kg

DRUGS (3)
  1. SYNTHROID [Concomitant]
     Active Substance: LEVOTHYROXINE SODIUM
     Dates: start: 2017
  2. FEXOFENADINE [Suspect]
     Active Substance: FEXOFENADINE\FEXOFENADINE HYDROCHLORIDE
     Indication: PERENNIAL ALLERGY
     Dosage: DAILY DOSE : 180 TO 360 MG
     Route: 048
     Dates: start: 2016
  3. IRBESARTAN. [Concomitant]
     Active Substance: IRBESARTAN
     Dates: start: 2011

REACTIONS (3)
  - Product administered to patient of inappropriate age [Unknown]
  - Incorrect dose administered [Unknown]
  - Vision blurred [Not Recovered/Not Resolved]

NARRATIVE: CASE EVENT DATE: 2016
